FAERS Safety Report 8586543-8 (Version None)
Quarter: 2012Q3

REPORT INFORMATION
  Report Type: 
  Country: None (occurrence: None)
  Receive Date: 20120730
  Receipt Date: 20120720
  Transmission Date: 20120928
  Serious: Yes (Hospitalization)
  Sender: FDA-Public Use
  Company Number: DKLU1077942

PATIENT
  Age: 13 Year
  Sex: Male

DRUGS (3)
  1. TRILEPTAL [Suspect]
     Indication: EPILEPSY
     Dosage: 2 IN 1 D, ORAL
     Route: 048
     Dates: end: 20120706
  2. ONFI [Suspect]
     Indication: EPILEPSY
     Dosage: 10 MG MILLIGRAM(S), 3 IN 1 D, ORAL
     Route: 048
  3. LAMOTRIGINE [Suspect]
     Indication: EPILEPSY
     Dosage: 2 IN 1 D, ORAL
     Route: 048

REACTIONS (3)
  - CHOLANGITIS [None]
  - RENAL FAILURE [None]
  - CHOLESTASIS [None]
